FAERS Safety Report 8305190-6 (Version None)
Quarter: 2012Q2

REPORT INFORMATION
  Report Type: 
  Country: None (occurrence: None)
  Receive Date: 20120411
  Receipt Date: 20120329
  Transmission Date: 20120825
  Serious: Yes (Hospitalization)
  Sender: FDA-Public Use
  Company Number: 2012031760

PATIENT
  Age: 33 Year
  Sex: Female
  Weight: 63.5036 kg

DRUGS (11)
  1. HIZENTRA [Suspect]
  2. AMOXICILLIN [Concomitant]
  3. NORETHINDRONE [Concomitant]
  4. LORATADINE [Concomitant]
  5. HIZENTRA [Suspect]
     Indication: IMMUNODEFICIENCY COMMON VARIABLE
     Dosage: SEE IMAGE
     Route: 042
  6. FORADIL [Concomitant]
  7. SINGULAIR [Concomitant]
  8. QVAR [Concomitant]
  9. LEXAPRO [Concomitant]
  10. HIZENTRA [Suspect]
  11. ALBUTEROL [Concomitant]

REACTIONS (3)
  - LARYNGITIS FUNGAL [None]
  - MATERNAL EXPOSURE DURING PREGNANCY [None]
  - FATIGUE [None]
